FAERS Safety Report 9456778 (Version 4)
Quarter: 2014Q1

REPORT INFORMATION
  Report Type: Spontaneous
  Country: JP (occurrence: JP)
  Receive Date: 20130813
  Receipt Date: 20140325
  Transmission Date: 20141002
  Serious: Yes (Hospitalization, Disabling)
  Sender: FDA-Public Use
  Company Number: JP-TEVA-425541USA

PATIENT
  Age: 79 Year
  Sex: Male
  Weight: 43 kg

DRUGS (10)
  1. BENDAMUSTINE [Suspect]
     Indication: B-CELL LYMPHOMA
     Route: 042
     Dates: start: 20130208, end: 20130209
  2. RITUXIMAB [Suspect]
     Indication: B-CELL LYMPHOMA
     Dates: start: 20130116
  3. RITUXIMAB [Suspect]
     Dates: start: 20130123
  4. RITUXIMAB [Suspect]
     Dates: start: 20130130
  5. LANSOPRAZOLE [Concomitant]
     Indication: GASTRIC ULCER
     Dosage: 15 MILLIGRAM DAILY;
     Dates: start: 20121124
  6. ALLOPURINOL [Concomitant]
     Indication: HYPERURICAEMIA
     Dosage: 100 MILLIGRAM DAILY;
     Dates: start: 20100512
  7. AMBROXOL HYDROCHLORIDE [Concomitant]
     Indication: BRONCHITIS CHRONIC
     Dosage: 45 MILLIGRAM DAILY;
     Dates: start: 20090220, end: 20130226
  8. SITAGLIPTIN PHOSPHATE MONOHYDRATE [Concomitant]
     Indication: DIABETES MELLITUS
     Dosage: 50 MILLIGRAM DAILY;
     Dates: start: 20110824, end: 20130226
  9. POLAPREZINC [Concomitant]
     Indication: GASTRIC ULCER
     Dosage: 150 MILLIGRAM DAILY;
     Dates: start: 20090220, end: 20130226
  10. ASPIRIN [Concomitant]
     Indication: CEREBRAL INFARCTION
     Dosage: 100 MILLIGRAM DAILY;
     Dates: start: 20051012, end: 20130226

REACTIONS (3)
  - Cerebral infarction [Unknown]
  - Embolic stroke [Unknown]
  - Hepatitis B [Recovering/Resolving]
